FAERS Safety Report 14347306 (Version 3)
Quarter: 2018Q1

REPORT INFORMATION
  Report Type: Spontaneous
  Country: US (occurrence: US)
  Receive Date: 20180103
  Receipt Date: 20180205
  Transmission Date: 20180509
  Serious: Yes (Life-Threatening, Hospitalization)
  Sender: FDA-Public Use
  Company Number: US-JNJFOC-20180101749

PATIENT
  Age: 63 Year
  Sex: Female

DRUGS (14)
  1. MISOPROSTOL. [Concomitant]
     Active Substance: MISOPROSTOL
     Dosage: TAKE 1 TABLET, TWO TIMES EVERY DAY, AFTER MEALS AND AT BED TIME
     Route: 048
  2. IMITREX [Concomitant]
     Active Substance: SUMATRIPTAN SUCCINATE
     Dosage: TAKE ONE TABLET AT ONSET OF HEADACHE, MAY REPEAT 1 TAB IN 2 HRS, NOT TO EXCEED 2 TABS PER 24 HRS
     Route: 048
  3. LOSARTAN. [Concomitant]
     Active Substance: LOSARTAN
     Route: 048
  4. FOLIC ACID. [Concomitant]
     Active Substance: FOLIC ACID
     Route: 048
  5. RESTASIS [Concomitant]
     Active Substance: CYCLOSPORINE
     Dosage: INSTILL 1 DROP BY OPHTHALMIC ROUTE INTO AFFECTED EYES
     Route: 047
  6. AZULFIDINE [Concomitant]
     Active Substance: SULFASALAZINE
     Dosage: TAKE 4 TABLETS BY MOUTH TWICE DAILY AFTER MEALS. GENERIC EQUIVALENT FOR AZULFADINE EN
     Route: 065
  7. HYDROCHLOROTHIAZIDE. [Concomitant]
     Active Substance: HYDROCHLOROTHIAZIDE
     Route: 048
  8. SIMPONI [Suspect]
     Active Substance: GOLIMUMAB
     Indication: RHEUMATOID ARTHRITIS
     Dosage: INJECT UNDER THE SKIN
     Route: 058
     Dates: start: 201711
  9. SYNTHROID [Concomitant]
     Active Substance: LEVOTHYROXINE SODIUM
     Dosage: AS DIRECTED
     Route: 065
  10. MAGNESIUM [Concomitant]
     Active Substance: MAGNESIUM
     Route: 065
  11. VITAMIN D3 [Concomitant]
     Active Substance: CHOLECALCIFEROL
     Route: 048
  12. TRAZODONE [Concomitant]
     Active Substance: TRAZODONE HYDROCHLORIDE
     Dosage: TAKE 1-3 PO Q HAS
     Route: 048
  13. SULFASALAZINE. [Concomitant]
     Active Substance: SULFASALAZINE
     Indication: RHEUMATOID ARTHRITIS
     Route: 065
  14. SULINDAC. [Concomitant]
     Active Substance: SULINDAC
     Indication: RHEUMATOID ARTHRITIS
     Dosage: TAKE 0.5-1 TABLET
     Route: 048

REACTIONS (3)
  - Road traffic accident [Unknown]
  - Seizure [Recovered/Resolved with Sequelae]
  - Lumbar vertebral fracture [Unknown]

NARRATIVE: CASE EVENT DATE: 201711
